FAERS Safety Report 11249208 (Version 1)
Quarter: 2015Q3

REPORT INFORMATION
  Report Type: Spontaneous
  Country: US (occurrence: US)
  Receive Date: 20150708
  Receipt Date: 20150708
  Transmission Date: 20151125
  Serious: Yes (Hospitalization)
  Sender: FDA-Public Use
  Company Number: US-009507513-1507USA003165

PATIENT
  Age: 25 Year
  Sex: Male

DRUGS (3)
  1. FLUTICASONE [Suspect]
     Active Substance: FLUTICASONE\FLUTICASONE PROPIONATE
     Indication: ASTHMA
  2. SINGULAIR [Suspect]
     Active Substance: MONTELUKAST SODIUM
     Indication: ASTHMA
     Dosage: UNK
     Dates: start: 199803, end: 199810
  3. SALMETEROL [Suspect]
     Active Substance: SALMETEROL
     Indication: ASTHMA

REACTIONS (10)
  - Vasculitic rash [Recovered/Resolved]
  - Occult blood positive [Recovered/Resolved]
  - Dyspnoea [Recovered/Resolved]
  - Fatigue [Recovered/Resolved]
  - Eosinophilia [Recovered/Resolved]
  - Diarrhoea [Recovered/Resolved]
  - Hypoxia [Recovered/Resolved]
  - Cardiac failure congestive [Recovered/Resolved]
  - Mononeuropathy multiplex [Not Recovered/Not Resolved]
  - Ventricular hypokinesia [Recovered/Resolved]

NARRATIVE: CASE EVENT DATE: 199810
